FAERS Safety Report 25304008 (Version 2)
Quarter: 2025Q3

REPORT INFORMATION
  Report Type: Spontaneous
  Country: EU (occurrence: EU)
  Receive Date: 20250513
  Receipt Date: 20250717
  Transmission Date: 20251021
  Serious: Yes (Death, Other)
  Sender: RANBAXY
  Company Number: EU-AFSSAPS-GR2025000251

PATIENT
  Age: 71 Year
  Sex: Female

DRUGS (2)
  1. CLOPIDOGREL [Suspect]
     Active Substance: CLOPIDOGREL BISULFATE
     Indication: Stent placement
     Dosage: 75 MILLIGRAM, DAILY
     Route: 048
     Dates: start: 202303, end: 20250103
  2. KARDEGIC [Suspect]
     Active Substance: ASPIRIN DL-LYSINE
     Indication: Stent placement
     Dosage: 160 MILLIGRAM, DAILY
     Route: 048
     Dates: start: 202303, end: 20250103

REACTIONS (1)
  - Subdural haematoma [Fatal]

NARRATIVE: CASE EVENT DATE: 20250101
